FAERS Safety Report 8897879 (Version 1)
Quarter: 2012Q4

REPORT INFORMATION
  Report Type: 
  Country: US (occurrence: US)
  Receive Date: 20121108
  Receipt Date: 20121108
  Transmission Date: 20130627
  Serious: No
  Sender: FDA-Public Use
  Company Number: US-AMGEN-USASP2012024792

PATIENT
  Age: 49 Year
  Sex: Male
  Weight: 69.84 kg

DRUGS (8)
  1. ENBREL [Suspect]
     Indication: PRODUCT USED FOR UNKNOWN INDICATION
     Dosage: 50 mg, qwk
     Route: 058
  2. METHOTREXATE [Concomitant]
     Dosage: 2.5 mg, UNK
  3. FOLIC ACID [Concomitant]
     Dosage: UNK
  4. OMEPRAZOLE [Concomitant]
     Dosage: 20 mg, UNK
  5. DIVALPROEX [Concomitant]
     Dosage: 125 mg, UNK
  6. SEROQUEL [Concomitant]
     Dosage: 25 mg, UNK
  7. SPIRIVA HANDIHALER [Concomitant]
     Dosage: UNK
  8. PLAQUENIL                          /00072602/ [Concomitant]
     Dosage: 200 mg, UNK

REACTIONS (2)
  - Skin burning sensation [Unknown]
  - Pruritus [Unknown]
